FAERS Safety Report 8466854 (Version 2)
Quarter: 2013Q2

REPORT INFORMATION
  Report Type: Spontaneous
  Country: US (occurrence: US)
  Receive Date: 20120320
  Receipt Date: 20130419
  Transmission Date: 20140414
  Serious: No
  Sender: FDA-Public Use
  Company Number: US-PFIZER INC-2012068276

PATIENT
  Sex: Female

DRUGS (1)
  1. LYRICA [Suspect]
     Indication: FIBROMYALGIA
     Dosage: UNK
     Dates: start: 2011, end: 201109

REACTIONS (3)
  - Sleep phase rhythm disturbance [Not Recovered/Not Resolved]
  - Confusional state [Unknown]
  - Fatigue [Unknown]
